FAERS Safety Report 10659679 (Version 3)
Quarter: 2015Q1

REPORT INFORMATION
  Report Type: Spontaneous
  Country: SE (occurrence: SE)
  Receive Date: 20141217
  Receipt Date: 20150208
  Transmission Date: 20150720
  Serious: Yes (Death, Hospitalization)
  Sender: FDA-Public Use
  Company Number: SE-MYLANLABS-2014M1014416

PATIENT

DRUGS (3)
  1. BRILIQUE [Suspect]
     Active Substance: TICAGRELOR
     Indication: ACUTE CORONARY SYNDROME
     Dosage: UNK
     Dates: start: 20140208
  2. TROMBYL [Suspect]
     Active Substance: ASPIRIN
     Indication: ACUTE CORONARY SYNDROME
     Dosage: UNK
     Dates: start: 20140208
  3. FONDAPARINUX [Suspect]
     Active Substance: FONDAPARINUX
     Indication: ACUTE CORONARY SYNDROME
     Dosage: UNK
     Dates: start: 20140208

REACTIONS (1)
  - Subdural haematoma [Fatal]

NARRATIVE: CASE EVENT DATE: 20140210
